FAERS Safety Report 18141757 (Version 2)
Quarter: 2020Q3

REPORT INFORMATION
  Report Type: Report from Study
  Country: None (occurrence: US)
  Receive Date: 20200812
  Receipt Date: 20200814
  Transmission Date: 20201103
  Serious: Yes (Other)
  Sender: FDA-Public Use
  Company Number: US-ABBVIE-20K-163-3521174-00

PATIENT
  Age: 58 Year
  Sex: Male

DRUGS (4)
  1. VENCLEXTA [Suspect]
     Active Substance: VENETOCLAX
     Dosage: TWO TABLETS BY MOUTH DAILY ON DAY 2
     Route: 048
     Dates: start: 20200803, end: 20200803
  2. VENCLEXTA [Suspect]
     Active Substance: VENETOCLAX
     Dosage: FOUR TABLETS BY MOUTH ONE TIME DAILY THEREAFTER
     Route: 048
     Dates: start: 20200804
  3. ACYCLOVIR. [Concomitant]
     Active Substance: ACYCLOVIR
     Indication: PRODUCT USED FOR UNKNOWN INDICATION
  4. VENCLEXTA [Suspect]
     Active Substance: VENETOCLAX
     Indication: ACUTE MYELOID LEUKAEMIA
     Dosage: TAKE ONE TABLET BY MOUTH DAILY ON DAY 1
     Route: 048
     Dates: start: 20200802, end: 20200802

REACTIONS (6)
  - Retching [Unknown]
  - Platelet count abnormal [Unknown]
  - Increased tendency to bruise [Unknown]
  - Haemoglobin abnormal [Unknown]
  - Cognitive disorder [Not Recovered/Not Resolved]
  - Nausea [Unknown]

NARRATIVE: CASE EVENT DATE: 2020
